FAERS Safety Report 7466293-1 (Version None)
Quarter: 2011Q2

REPORT INFORMATION
  Report Type: 
  Country: None (occurrence: None)
  Receive Date: 20110509
  Receipt Date: 20100728
  Transmission Date: 20111010
  Serious: No
  Sender: FDA-Public Use
  Company Number: US-ALEXION-A201000901

PATIENT
  Sex: Female

DRUGS (18)
  1. ESTRACE [Concomitant]
  2. KLONOPIN [Concomitant]
  3. NEURONTIN [Concomitant]
  4. SOLIRIS [Suspect]
     Dosage: 900 MG, Q2W
     Route: 042
     Dates: start: 20100701
  5. SYNTHROID [Concomitant]
  6. VITAMIN B6 [Concomitant]
  7. FOLIC ACID [Concomitant]
  8. SOLIRIS [Suspect]
     Indication: PAROXYSMAL NOCTURNAL HAEMOGLOBINURIA
     Dosage: 600 MG, QW
     Route: 042
     Dates: start: 20100603, end: 20100624
  9. BENTYL [Concomitant]
     Indication: IRRITABLE BOWEL SYNDROME
  10. K-DUR [Concomitant]
     Dosage: SOMETIMES
  11. CLARITIN                           /00917501/ [Concomitant]
  12. ZYVOX [Concomitant]
  13. DRISDOL [Concomitant]
  14. VITAMIN E                          /00110501/ [Concomitant]
  15. PRISTIQ [Concomitant]
  16. ZYPREXA [Concomitant]
  17. BUMEX [Concomitant]
  18. MOTRIN [Concomitant]

REACTIONS (1)
  - DYSURIA [None]
